FAERS Safety Report 9571908 (Version 4)
Quarter: 2013Q4

REPORT INFORMATION
  Report Type: Spontaneous
  Country: US (occurrence: US)
  Receive Date: 20131001
  Receipt Date: 20131126
  Transmission Date: 20140711
  Serious: Yes (Death, Hospitalization, Other)
  Sender: FDA-Public Use
  Company Number: US-GILEAD-2013-0084401

PATIENT
  Age: 89 Year
  Sex: Male

DRUGS (3)
  1. LETAIRIS [Suspect]
     Indication: PRODUCT USED FOR UNKNOWN INDICATION
     Dosage: 10 MG, QD
     Route: 048
     Dates: start: 20091001
  2. COUMADIN                           /00014802/ [Concomitant]
  3. TYVASO [Concomitant]

REACTIONS (2)
  - Death [Fatal]
  - Dyspnoea [Unknown]
